FAERS Safety Report 17593045 (Version 1)
Quarter: 2020Q1

REPORT INFORMATION
  Report Type: Spontaneous
  Country: US (occurrence: US)
  Receive Date: 20200327
  Receipt Date: 20200327
  Transmission Date: 20200409
  Serious: Yes (Life-Threatening, Hospitalization, Other)
  Sender: FDA-Public Use
  Company Number: US-HIKMA PHARMACEUTICALS USA INC.-US-H14001-20-50936

PATIENT
  Age: 10 Year
  Sex: Male

DRUGS (6)
  1. CYCLOPHOSPHAMIDE. [Suspect]
     Active Substance: CYCLOPHOSPHAMIDE
     Indication: CLEAR CELL SARCOMA OF THE KIDNEY
     Dosage: ALTERNATING WITH CYCLOPHOSPHAMIDE, ETOPOSIDE, AND CARBOPLATIN EVERY 3 WEEKS. () ; CYCLICAL
     Route: 065
  2. VINCRISTINE [Suspect]
     Active Substance: VINCRISTINE
     Indication: CLEAR CELL SARCOMA OF THE KIDNEY
     Dosage: RECEIVED 12 WEEKS OF NEOADJUVANT CHEMOTHERAPY WITH VINCRISTINE, DOXORUBICIN, AND CYCLOPHOSPHAMIDE...
     Route: 065
  3. ETOPOSIDE. [Suspect]
     Active Substance: ETOPOSIDE
     Indication: CLEAR CELL SARCOMA OF THE KIDNEY
     Dosage: RECEIVED 12 WEEKS OF NEOADJUVANT CHEMOTHERAPY WITH VINCRISTINE, DOXORUBICIN, AND CYCLOPHOSPHAMIDE...
     Route: 065
  4. DOXORUBICIN [Suspect]
     Active Substance: DOXORUBICIN
     Indication: CLEAR CELL SARCOMA OF THE KIDNEY
     Dosage: RECEIVED 12 WEEKS OF NEOADJUVANT CHEMOTHERAPY WITH VINCRISTINE, DOXORUBICIN, AND CYCLOPHOSPHAMIDE...
     Route: 065
  5. CYCLOPHOSPHAMIDE. [Suspect]
     Active Substance: CYCLOPHOSPHAMIDE
     Indication: CLEAR CELL SARCOMA OF THE KIDNEY
     Dosage: RECEIVED 12 WEEKS OF NEOADJUVANT CHEMOTHERAPY WITH VINCRISTINE, DOXORUBICIN, AND CYCLOPHOSPHAMIDE...
  6. CARBOPLATIN. [Suspect]
     Active Substance: CARBOPLATIN
     Indication: CLEAR CELL SARCOMA OF THE KIDNEY
     Dosage: RECEIVED 12 WEEKS OF NEOADJUVANT CHEMOTHERAPY WITH VINCRISTINE, DOXORUBICIN, AND CYCLOPHOSPHAMIDE...
     Route: 065

REACTIONS (1)
  - Septic shock [Unknown]
